FAERS Safety Report 7787325-7 (Version None)
Quarter: 2011Q3

REPORT INFORMATION
  Report Type: 
  Country: None (occurrence: None)
  Receive Date: 20110929
  Receipt Date: 20110922
  Transmission Date: 20111222
  Serious: Yes (Disabling, Other)
  Sender: FDA-Public Use
  Company Number: PHHY2011DK68464

PATIENT
  Sex: Male

DRUGS (13)
  1. CRESTOR [Suspect]
     Route: 065
  2. CRESTOR [Suspect]
     Route: 048
  3. CRESTOR [Suspect]
     Route: 048
  4. MAGNYL [Concomitant]
     Route: 065
  5. METFORMIN HCL [Suspect]
  6. ONGLYZA [Suspect]
     Indication: TYPE 2 DIABETES MELLITUS
     Dosage: 5 MG, QD
     Route: 048
     Dates: start: 20101110, end: 20101204
  7. METFORMIN HCL [Suspect]
  8. POTASSIUM CHLORIDE [Concomitant]
     Route: 065
  9. DIGOXIN [Concomitant]
  10. INSULATARD NPH HUMAN [Concomitant]
     Route: 065
  11. ENALAPRIL MALEATE [Concomitant]
  12. FUROSEMIDE [Concomitant]
     Route: 065
  13. SAXAGLIPTIN [Concomitant]

REACTIONS (4)
  - DISCOMFORT [None]
  - WEIGHT INCREASED [None]
  - HEADACHE [None]
  - FLUID RETENTION [None]
